FAERS Safety Report 12884117 (Version 2)
Quarter: 2016Q4

REPORT INFORMATION
  Report Type: Spontaneous
  Country: US (occurrence: US)
  Receive Date: 20161026
  Receipt Date: 20161102
  Transmission Date: 20170207
  Serious: No
  Sender: FDA-Public Use
  Company Number: US-PFIZER INC-2016495337

PATIENT
  Sex: Female

DRUGS (1)
  1. XELJANZ [Suspect]
     Active Substance: TOFACITINIB CITRATE
     Dosage: 5 MG, UNK

REACTIONS (8)
  - Myalgia [Unknown]
  - Asthenia [Unknown]
  - Alopecia [Unknown]
  - Vision blurred [Unknown]
  - Swelling [Unknown]
  - Abdominal pain [Unknown]
  - Arthralgia [Unknown]
  - Synovitis [Unknown]
